FAERS Safety Report 7360070-8 (Version None)
Quarter: 2011Q1

REPORT INFORMATION
  Report Type: 
  Country: None (occurrence: None)
  Receive Date: 20110317
  Receipt Date: 20110309
  Transmission Date: 20110831
  Serious: Yes (Hospitalization)
  Sender: FDA-Public Use
  Company Number: FR-ELI_LILLY_AND_COMPANY-FR201103003890

PATIENT
  Sex: Female

DRUGS (4)
  1. BISOPROLOL [Concomitant]
     Indication: HYPERTENSION
  2. ACUILIX [Concomitant]
     Indication: HYPERTENSION
     Dosage: 40 MG, DAILY (1/D)
  3. OTHER PHARMA COMPANY INV DRUG [Suspect]
     Indication: PULMONARY ARTERIAL HYPERTENSION
     Dosage: 5 MG, UNK
     Route: 048
     Dates: start: 20110218, end: 20110223
  4. TADALAFIL [Suspect]
     Indication: PULMONARY ARTERIAL HYPERTENSION
     Dosage: 20 MG, UNK
     Route: 048
     Dates: start: 20110218, end: 20110223

REACTIONS (1)
  - RENAL FAILURE ACUTE [None]
